FAERS Safety Report 8277640-5 (Version None)
Quarter: 2012Q2

REPORT INFORMATION
  Report Type: 
  Country: None (occurrence: None)
  Receive Date: 20120412
  Receipt Date: 20120402
  Transmission Date: 20120825
  Serious: Yes (Hospitalization, Other)
  Sender: FDA-Public Use
  Company Number: CA-JNJFOC-20120304353

PATIENT
  Sex: Male
  Weight: 65 kg

DRUGS (2)
  1. REMICADE [Suspect]
     Indication: CROHN'S DISEASE
     Route: 042
     Dates: start: 20080331
  2. REMICADE [Suspect]
     Route: 042
     Dates: start: 20120207

REACTIONS (3)
  - INTESTINAL OBSTRUCTION [None]
  - WEIGHT DECREASED [None]
  - POSTOPERATIVE WOUND INFECTION [None]
